FAERS Safety Report 10484195 (Version 4)
Quarter: 2015Q3

REPORT INFORMATION
  Report Type: Spontaneous
  Country: US (occurrence: US)
  Receive Date: 20140930
  Receipt Date: 20150921
  Transmission Date: 20151125
  Serious: Yes (Death, Hospitalization, Other)
  Sender: FDA-Public Use
  Company Number: US-MERCK-1409USA014255

PATIENT
  Sex: Male
  Weight: 79.37 kg

DRUGS (1)
  1. JANUVIA [Suspect]
     Active Substance: SITAGLIPTIN PHOSPHATE
     Indication: TYPE 2 DIABETES MELLITUS
     Dosage: 100 MG, QD
     Route: 048
     Dates: start: 20080221, end: 20110520

REACTIONS (29)
  - Sinus operation [Unknown]
  - Depression [Unknown]
  - Cardiac operation [Unknown]
  - Surgery [Unknown]
  - Intraductal papillary mucinous neoplasm [Unknown]
  - Disability [Unknown]
  - Breath odour [Unknown]
  - Pancreatic carcinoma metastatic [Unknown]
  - Metastases to liver [Unknown]
  - Lymphadenopathy [Unknown]
  - Aortic dilatation [Unknown]
  - Metastasis [Unknown]
  - Parkinson^s disease [Unknown]
  - Tonsillectomy [Unknown]
  - Pulmonary mass [Unknown]
  - Nephrolithiasis [Unknown]
  - Hypertension [Unknown]
  - Dyskinesia [Unknown]
  - Asthenia [Unknown]
  - Pancreatic cyst [Unknown]
  - Stent placement [Unknown]
  - Epistaxis [Unknown]
  - Cholestasis [Unknown]
  - Hiatus hernia [Unknown]
  - Fatigue [Unknown]
  - Dementia [Unknown]
  - Aortic aneurysm [Unknown]
  - Death [Fatal]
  - Aortic arteriosclerosis [Unknown]

NARRATIVE: CASE EVENT DATE: 201006
